FAERS Safety Report 16969082 (Version 2)
Quarter: 2020Q1

REPORT INFORMATION
  Report Type: Spontaneous
  Country: US (occurrence: US)
  Receive Date: 20191029
  Receipt Date: 20200130
  Transmission Date: 20200409
  Serious: No
  Sender: FDA-Public Use
  Company Number: US-GLENMARK PHARMACEUTICALS-2019GMK043765

PATIENT

DRUGS (1)
  1. DESONIDE CREAM [Suspect]
     Active Substance: DESONIDE
     Indication: HERPES ZOSTER
     Dosage: UNK, BID
     Route: 061
     Dates: start: 20190315, end: 20190328

REACTIONS (3)
  - Acne [Recovering/Resolving]
  - Erythema [Recovering/Resolving]
  - Drug ineffective for unapproved indication [Unknown]

NARRATIVE: CASE EVENT DATE: 201903
